FAERS Safety Report 20517053 (Version 3)
Quarter: 2022Q1

REPORT INFORMATION
  Report Type: Report from Study
  Country: CL (occurrence: None)
  Receive Date: 20220225
  Receipt Date: 20220321
  Transmission Date: 20220423
  Serious: Yes (Other)
  Sender: FDA-Public Use
  Company Number: CL-Merck Healthcare KGaA-9302105

PATIENT
  Age: 22 Year
  Sex: Female

DRUGS (3)
  1. REBIF [Suspect]
     Active Substance: INTERFERON BETA-1A
     Indication: Multiple sclerosis
     Route: 058
     Dates: start: 20200811
  2. IBUPROFEN [Concomitant]
     Active Substance: IBUPROFEN
     Indication: Sleep disorder
  3. AMITRIPTYLINE [Concomitant]
     Active Substance: AMITRIPTYLINE
     Indication: Sleep disorder

REACTIONS (4)
  - Hypertensive crisis [Recovering/Resolving]
  - Multiple sclerosis relapse [Recovering/Resolving]
  - Obesity [Unknown]
  - Headache [Unknown]

NARRATIVE: CASE EVENT DATE: 20211227
